FAERS Safety Report 20406608 (Version 2)
Quarter: 2022Q2

REPORT INFORMATION
  Report Type: Spontaneous
  Country: GB (occurrence: GB)
  Receive Date: 20220131
  Receipt Date: 20220406
  Transmission Date: 20220720
  Serious: Yes (Death, Other)
  Sender: FDA-Public Use
  Company Number: GB-SA-2022SA021794

PATIENT
  Age: 60 Year
  Sex: Male

DRUGS (1)
  1. DUPIXENT [Suspect]
     Active Substance: DUPILUMAB
     Indication: Dermatitis atopic
     Dosage: UNK

REACTIONS (8)
  - Cutaneous T-cell lymphoma stage IV [Fatal]
  - Unmasking of previously unidentified disease [Fatal]
  - Condition aggravated [Fatal]
  - Lymphadenopathy [Fatal]
  - Rash erythematous [Fatal]
  - Skin plaque [Fatal]
  - Papule [Fatal]
  - Metastases to lymph nodes [Fatal]
